FAERS Safety Report 7502311-X (Version None)
Quarter: 2011Q2

REPORT INFORMATION
  Report Type: 
  Country: None (occurrence: None)
  Receive Date: 20110525
  Receipt Date: 20110120
  Transmission Date: 20111010
  Serious: Yes (Hospitalization, Other)
  Sender: FDA-Public Use
  Company Number: US-BAYER-201039785NA

PATIENT
  Age: 27 Year
  Sex: Female
  Weight: 92.971 kg

DRUGS (7)
  1. DEPAKOTE [Concomitant]
     Indication: MIGRAINE
     Dosage: 500 MG, HS
  2. TYLENOL W/ CODEINE [Concomitant]
  3. PROPRANOLOL [Concomitant]
     Indication: HEADACHE
     Route: 048
  4. YAZ [Suspect]
     Indication: CONTRACEPTION
     Dosage: UNK UNK, UNK
     Route: 048
     Dates: start: 20070401, end: 20080910
  5. MOTRIN [Concomitant]
  6. IBUPROFEN [Concomitant]
     Indication: PAIN
     Dosage: 800 MG, UNK
  7. VICODIN [Concomitant]
     Indication: ARTHRALGIA
     Dosage: UNK UNK, PRN

REACTIONS (7)
  - PAIN IN EXTREMITY [None]
  - DIZZINESS [None]
  - FATIGUE [None]
  - DEEP VEIN THROMBOSIS [None]
  - PULMONARY EMBOLISM [None]
  - DYSPNOEA [None]
  - MENTAL DISORDER [None]
